FAERS Safety Report 9924397 (Version 1)
Quarter: 2014Q1

REPORT INFORMATION
  Report Type: Report from Study
  Country: US (occurrence: US)
  Receive Date: 20140226
  Receipt Date: 20140226
  Transmission Date: 20141002
  Serious: Yes (Other)
  Sender: FDA-Public Use
  Company Number: US-ROCHE-1333656

PATIENT
  Age: 80 Year
  Sex: Male

DRUGS (12)
  1. LUCENTIS [Suspect]
     Indication: AGE-RELATED MACULAR DEGENERATION
     Dosage: OS
     Route: 050
     Dates: start: 20110215
  2. AVASTIN [Suspect]
     Indication: AGE-RELATED MACULAR DEGENERATION
     Dosage: OS
     Route: 050
     Dates: start: 20100111
  3. AVASTIN [Suspect]
     Dosage: OD
     Route: 050
     Dates: start: 20110705
  4. ALPRAZOLAM [Concomitant]
  5. ASPIRIN [Concomitant]
     Route: 065
  6. CYCLOBENZAPRINE [Concomitant]
  7. OMEPRAZOLE [Concomitant]
  8. OXYCODONE [Concomitant]
     Dosage: PRN
     Route: 065
  9. TERAZOSIN [Concomitant]
  10. TIMOLOL [Concomitant]
     Dosage: OU
     Route: 065
  11. ZOLPIDEM [Concomitant]
  12. BETADINE [Concomitant]
     Route: 065

REACTIONS (5)
  - Eye irritation [Recovered/Resolved]
  - Ocular discomfort [Unknown]
  - Retinal detachment [Unknown]
  - Retinal pigment epithelial tear [Unknown]
  - Off label use [Unknown]
